FAERS Safety Report 4566340-0 (Version None)
Quarter: 2005Q1

REPORT INFORMATION
  Report Type: 
  Country: None (occurrence: None)
  Receive Date: 20050126
  Receipt Date: 20050126
  Transmission Date: 20050727
  Serious: Yes (Other)
  Sender: FDA-Public Use
  Company Number: None

PATIENT
  Age: 64 Year
  Sex: Male
  Weight: 77.6 kg

DRUGS (5)
  1. SIMVASTATIN [Suspect]
  2. METOPROLOL TARTRATE [Concomitant]
  3. TAMSULOSIN HCL [Concomitant]
  4. METOPROLOL TARTRATE [Concomitant]
  5. NITROGLYCERIN [Concomitant]

REACTIONS (1)
  - NAUSEA [None]
